FAERS Safety Report 8848997 (Version 1)
Quarter: 2012Q4

REPORT INFORMATION
  Report Type: Spontaneous
  Country: US (occurrence: None)
  Receive Date: 20121017
  Receipt Date: 20121017
  Transmission Date: 20130627
  Serious: Yes (Other)
  Sender: FDA-Public Use
  Company Number: None

PATIENT
  Age: 85 Year
  Sex: Female
  Weight: 60.78 kg

DRUGS (1)
  1. DONEPEZIL [Suspect]
     Indication: MEMORY LOSS
     Dosage: TAKE 1 TABLET NIGHTLY
     Dates: start: 201203, end: 201204

REACTIONS (2)
  - Fall [None]
  - Clavicle fracture [None]
